FAERS Safety Report 21997835 (Version 8)
Quarter: 2023Q4

REPORT INFORMATION
  Report Type: Report from Study
  Country: US (occurrence: US)
  Receive Date: 20230216
  Receipt Date: 20231220
  Transmission Date: 20240110
  Serious: Yes (Hospitalization, Other)
  Sender: FDA-Public Use
  Company Number: US-002147023-NVSC2023US030218

PATIENT
  Sex: Female

DRUGS (1)
  1. KESIMPTA [Suspect]
     Active Substance: OFATUMUMAB
     Indication: Product used for unknown indication
     Dosage: 20 MG/KG, OTHER (VIAL)
     Route: 058

REACTIONS (9)
  - Mental disorder [Unknown]
  - Dehydration [Unknown]
  - Hypotension [Unknown]
  - Constipation [Unknown]
  - Brain injury [Unknown]
  - Thrombosis [Unknown]
  - Peripheral swelling [Unknown]
  - Headache [Unknown]
  - Hypoaesthesia [Unknown]
